FAERS Safety Report 25275060 (Version 3)
Quarter: 2025Q3

REPORT INFORMATION
  Report Type: Spontaneous
  Country: US (occurrence: US)
  Receive Date: 20250506
  Receipt Date: 20250708
  Transmission Date: 20251021
  Serious: Yes (Other)
  Sender: PFIZER
  Company Number: US-PFIZER INC-PV202400047895

PATIENT
  Age: 2 Year
  Sex: Female
  Weight: 3.175 kg

DRUGS (2)
  1. SOMATROPIN [Suspect]
     Active Substance: SOMATROPIN
     Indication: Hypopituitarism
     Dosage: 0.2 MG, DAILY (7 DAYS PER WEEK)
  2. SOMATROPIN [Suspect]
     Active Substance: SOMATROPIN
     Indication: Growth hormone deficiency

REACTIONS (6)
  - Anophthalmos [Unknown]
  - Macrocephaly [Unknown]
  - Craniofacial deformity [Unknown]
  - Developmental delay [Unknown]
  - Congenital anomaly [Unknown]
  - Dysphagia [Unknown]
